FAERS Safety Report 24834338 (Version 1)
Quarter: 2025Q1

REPORT INFORMATION
  Report Type: Spontaneous
  Country: IT (occurrence: IT)
  Receive Date: 20250113
  Receipt Date: 20250113
  Transmission Date: 20250409
  Serious: Yes (Life-Threatening, Hospitalization)
  Sender: ACCORD
  Company Number: None

PATIENT
  Age: 69 Year
  Sex: Male
  Weight: 80 kg

DRUGS (2)
  1. CARBOPLATIN [Suspect]
     Active Substance: CARBOPLATIN
     Indication: Oral neoplasm
     Dates: start: 20231017, end: 20231107
  2. PACLITAXEL [Suspect]
     Active Substance: PACLITAXEL
     Indication: Oral neoplasm
     Dates: start: 20231017, end: 20231107

REACTIONS (10)
  - Febrile neutropenia [Recovered/Resolved with Sequelae]
  - Acute respiratory failure [Recovered/Resolved with Sequelae]
  - Pneumonitis [Recovered/Resolved]
  - COVID-19 [Recovered/Resolved]
  - Staphylococcal sepsis [Recovered/Resolved]
  - Blood loss anaemia [Recovered/Resolved with Sequelae]
  - Gastric ulcer [Recovered/Resolved with Sequelae]
  - Colitis [Recovered/Resolved with Sequelae]
  - Pulmonary embolism [Recovered/Resolved with Sequelae]
  - Intensive care unit acquired weakness [Recovering/Resolving]

NARRATIVE: CASE EVENT DATE: 20231115
